FAERS Safety Report 5676802-0 (Version None)
Quarter: 2008Q1

REPORT INFORMATION
  Report Type: 
  Country: None (occurrence: None)
  Receive Date: 20080318
  Receipt Date: 20080227
  Transmission Date: 20080703
  Serious: Yes (Death, Other)
  Sender: FDA-Public Use
  Company Number: JPI-P-002912

PATIENT
  Age: 39 Year
  Sex: Male

DRUGS (6)
  1. XYREM [Suspect]
     Indication: CATAPLEXY
     Dosage: 4.5 GM (2.25 GM, 2 IN 1 D) ORAL ; 2.5 GM (1.25 GM, 2 IN1 D) ORAL
     Route: 048
     Dates: start: 20071211, end: 20071201
  2. XYREM [Suspect]
     Indication: NARCOLEPSY
     Dosage: 4.5 GM (2.25 GM, 2 IN 1 D) ORAL ; 2.5 GM (1.25 GM, 2 IN1 D) ORAL
     Route: 048
     Dates: start: 20071211, end: 20071201
  3. XYREM [Suspect]
     Indication: CATAPLEXY
     Dosage: 4.5 GM (2.25 GM, 2 IN 1 D) ORAL ; 2.5 GM (1.25 GM, 2 IN1 D) ORAL
     Route: 048
     Dates: start: 20071201, end: 20071230
  4. XYREM [Suspect]
     Indication: NARCOLEPSY
     Dosage: 4.5 GM (2.25 GM, 2 IN 1 D) ORAL ; 2.5 GM (1.25 GM, 2 IN1 D) ORAL
     Route: 048
     Dates: start: 20071201, end: 20071230
  5. DEXAMFETAMINE (DEXAMFETAMINE) [Suspect]
     Indication: DRUG USE FOR UNKNOWN INDICATION
     Dosage: 60-100 MG DAY
     Dates: start: 20060502, end: 20080101
  6. VENLAFAXINE HCL [Concomitant]

REACTIONS (4)
  - AMPHETAMINES POSITIVE [None]
  - DRUG EFFECT DECREASED [None]
  - HALLUCINATION, AUDITORY [None]
  - SUDDEN DEATH [None]
